FAERS Safety Report 13282251 (Version 2)
Quarter: 2017Q1

REPORT INFORMATION
  Report Type: Spontaneous
  Country: IT (occurrence: IT)
  Receive Date: 20170301
  Receipt Date: 20170307
  Transmission Date: 20170428
  Serious: Yes (Hospitalization)
  Sender: FDA-Public Use
  Company Number: PHHY2017IT029673

PATIENT
  Age: 46 Year
  Sex: Female

DRUGS (4)
  1. TEGRETOL [Suspect]
     Active Substance: CARBAMAZEPINE
     Indication: SUICIDE ATTEMPT
     Dosage: 90 DF, UNK (TOTAL)
     Route: 048
     Dates: start: 20170208, end: 20170209
  2. CIPRALEX [Suspect]
     Active Substance: ESCITALOPRAM OXALATE
     Indication: SUICIDE ATTEMPT
     Dosage: 10 DF, UNK (TOTAL)
     Route: 048
     Dates: start: 20170208, end: 20170209
  3. DEPAKIN [Suspect]
     Active Substance: VALPROATE SODIUM
     Indication: SUICIDE ATTEMPT
     Dosage: 20 DF, UNK (TOTAL)
     Route: 048
     Dates: start: 20170208, end: 20170209
  4. SEROQUEL [Suspect]
     Active Substance: QUETIAPINE FUMARATE
     Indication: SUICIDE ATTEMPT
     Dosage: 50 DF, UNK(TOTAL)
     Route: 048
     Dates: start: 20170208, end: 20170209

REACTIONS (4)
  - Neurological decompensation [Recovered/Resolved]
  - Lactic acidosis [Recovered/Resolved]
  - Drug abuse [Recovered/Resolved]
  - Metabolic disorder [Recovered/Resolved]

NARRATIVE: CASE EVENT DATE: 20170209
